FAERS Safety Report 25586709 (Version 2)
Quarter: 2025Q3

REPORT INFORMATION
  Report Type: Spontaneous
  Country: EU (occurrence: EU)
  Receive Date: 20250721
  Receipt Date: 20250825
  Transmission Date: 20251021
  Serious: Yes (Other)
  Sender: NOVARTIS
  Company Number: EU-002147023-NVSC2025DE114714

PATIENT
  Sex: Female

DRUGS (2)
  1. KISQALI [Suspect]
     Active Substance: RIBOCICLIB SUCCINATE
     Indication: Adjuvant therapy
     Route: 065
     Dates: start: 20250703
  2. LETROZOLE [Suspect]
     Active Substance: LETROZOLE
     Indication: Adjuvant therapy
     Route: 065
     Dates: start: 20250703

REACTIONS (5)
  - Syncope [Unknown]
  - Loss of consciousness [Unknown]
  - Fall [Unknown]
  - Skin laceration [Unknown]
  - Vomiting [Unknown]

NARRATIVE: CASE EVENT DATE: 20250704
